FAERS Safety Report 8792207 (Version 1)
Quarter: 2012Q4

REPORT INFORMATION
  Report Type: 
  Country: US (occurrence: US)
  Receive Date: 20120918
  Receipt Date: 20120918
  Transmission Date: 20130627
  Serious: Yes (Death)
  Sender: FDA-Public Use
  Company Number: US-ROCHE-1128189

PATIENT
  Sex: Male

DRUGS (3)
  1. AVASTIN [Suspect]
     Indication: HEREDITARY HAEMORRHAGIC TELANGIECTASIA
     Route: 065
  2. AVASTIN [Suspect]
     Indication: CONGENITAL PULMONARY ARTERY ANOMALY
  3. AVASTIN [Suspect]
     Indication: HEREDITARY HAEMORRHAGIC TELANGIECTASIA

REACTIONS (1)
  - Death [Fatal]
